FAERS Safety Report 7009229-X (Version None)
Quarter: 2010Q3

REPORT INFORMATION
  Report Type: 
  Country: None (occurrence: None)
  Receive Date: 20100923
  Receipt Date: 20100909
  Transmission Date: 20110219
  Serious: Yes (Hospitalization)
  Sender: FDA-Public Use
  Company Number: NZ-RANBAXY-2010RR-38213

PATIENT
  Age: 63 Year
  Sex: Female

DRUGS (2)
  1. CODEINE SULFATE [Suspect]
  2. NUROFEN PLUS [Suspect]

REACTIONS (3)
  - DRUG ABUSE [None]
  - DRUG DEPENDENCE [None]
  - DRUG INTERACTION [None]
